FAERS Safety Report 14816912 (Version 1)
Quarter: 2018Q2

REPORT INFORMATION
  Report Type: Spontaneous
  Country: US (occurrence: US)
  Receive Date: 20180426
  Receipt Date: 20180426
  Transmission Date: 20180711
  Serious: Yes (Hospitalization, Other)
  Sender: FDA-Public Use
  Company Number: US-PFIZER INC-2018165805

PATIENT
  Sex: Female
  Weight: 52.62 kg

DRUGS (1)
  1. ACCUPRIL [Suspect]
     Active Substance: QUINAPRIL HYDROCHLORIDE
     Indication: HYPERTENSION
     Dosage: 40 MG, 1X/DAY
     Route: 048

REACTIONS (8)
  - Dizziness [Recovered/Resolved]
  - Drug dose omission [Unknown]
  - Heart rate increased [Unknown]
  - Blood pressure inadequately controlled [Unknown]
  - Stress [Unknown]
  - Pain [Unknown]
  - Feeling abnormal [Unknown]
  - Myocardial ischaemia [Unknown]
